FAERS Safety Report 9112395 (Version 1)
Quarter: 2013Q1

REPORT INFORMATION
  Report Type: Spontaneous
  Country: US (occurrence: US)
  Receive Date: 20130219
  Receipt Date: 20130219
  Transmission Date: 20140127
  Serious: No
  Sender: FDA-Public Use
  Company Number: US-BRISTOL-MYERS SQUIBB COMPANY-16413254

PATIENT
  Age: 49 Year
  Sex: Female

DRUGS (7)
  1. ORENCIA [Suspect]
     Indication: PSORIATIC ARTHROPATHY
     Dosage: RECIEVED ON 26OCT,25NOV,7DEC11,7FEB12
     Route: 042
     Dates: start: 20111026
  2. METOPROLOL [Concomitant]
  3. SPIRONOLACTONE [Concomitant]
  4. LORAZEPAM [Concomitant]
  5. LORATADINE [Concomitant]
  6. FUROSEMIDE [Concomitant]
  7. MYCOPHENOLATE MOFETIL [Concomitant]

REACTIONS (2)
  - Dysfunctional uterine bleeding [Unknown]
  - Breast tenderness [Unknown]
